FAERS Safety Report 21372119 (Version 2)
Quarter: 2022Q4

REPORT INFORMATION
  Report Type: Spontaneous
  Country: US (occurrence: US)
  Receive Date: 20220923
  Receipt Date: 20221006
  Transmission Date: 20230113
  Serious: Yes (Life-Threatening, Other)
  Sender: FDA-Public Use
  Company Number: US-ALLERGAN-2230410US

PATIENT

DRUGS (2)
  1. VRAYLAR [Suspect]
     Active Substance: CARIPRAZINE
     Indication: Bipolar disorder
     Dosage: 3 MG, QD
  2. VRAYLAR [Suspect]
     Active Substance: CARIPRAZINE
     Dosage: 1.5 MG, QD

REACTIONS (4)
  - Homicidal ideation [Not Recovered/Not Resolved]
  - Intrusive thoughts [Not Recovered/Not Resolved]
  - Condition aggravated [Not Recovered/Not Resolved]
  - Suicidal ideation [Not Recovered/Not Resolved]
